FAERS Safety Report 25542441 (Version 2)
Quarter: 2025Q3

REPORT INFORMATION
  Report Type: Spontaneous
  Country: JP (occurrence: JP)
  Receive Date: 20250711
  Receipt Date: 20250828
  Transmission Date: 20251020
  Serious: Yes (Hospitalization)
  Sender: GLAXOSMITHKLINE
  Company Number: JP-GSK-JP2025JPN047493

PATIENT

DRUGS (2)
  1. DAPRODUSTAT [Suspect]
     Active Substance: DAPRODUSTAT
     Indication: Nephrogenic anaemia
  2. VADADUSTAT [Concomitant]
     Active Substance: VADADUSTAT
     Indication: Nephrogenic anaemia
     Dosage: 600 MG, QD

REACTIONS (4)
  - Hospitalisation [Unknown]
  - Haemoglobin decreased [Recovering/Resolving]
  - Product use issue [Unknown]
  - Off label use [Unknown]

NARRATIVE: CASE EVENT DATE: 20250401
